FAERS Safety Report 9260141 (Version 1)
Quarter: 2013Q2

REPORT INFORMATION
  Report Type: Report from Study
  Country: AU (occurrence: AU)
  Receive Date: 20130429
  Receipt Date: 20130429
  Transmission Date: 20140414
  Serious: Yes (Other)
  Sender: FDA-Public Use
  Company Number: PHHY2012AU128274

PATIENT
  Sex: Male
  Weight: 56 kg

DRUGS (3)
  1. EXJADE [Suspect]
     Indication: MYELODYSPLASTIC SYNDROME
     Dosage: 500 MG
     Route: 048
     Dates: start: 20120504
  2. PREDNISONE [Concomitant]
     Dosage: 7.5 MG, UNK
  3. PREDNISONE [Concomitant]
     Dosage: 5 MG, UNK
     Dates: start: 20120524

REACTIONS (5)
  - Bone disorder [Unknown]
  - Open fracture [Unknown]
  - Back pain [Unknown]
  - Weight decreased [Unknown]
  - Constipation [Unknown]
